FAERS Safety Report 7073839-4 (Version None)
Quarter: 2010Q4

REPORT INFORMATION
  Report Type: 
  Country: None (occurrence: None)
  Receive Date: 20101029
  Receipt Date: 20100823
  Transmission Date: 20110411
  Serious: No
  Sender: FDA-Public Use
  Company Number: A0877255A

PATIENT
  Age: 54 Year
  Sex: Female

DRUGS (4)
  1. ADVAIR DISKUS 100/50 [Suspect]
     Indication: CHRONIC OBSTRUCTIVE PULMONARY DISEASE
     Dosage: 2PUFF PER DAY
     Route: 055
     Dates: start: 20100813, end: 20100823
  2. AMLODIPINE [Concomitant]
  3. ATENOLOL [Concomitant]
  4. ALBUTEROL [Concomitant]

REACTIONS (2)
  - CHEST PAIN [None]
  - MUSCLE SPASMS [None]
